FAERS Safety Report 15417734 (Version 1)
Quarter: 2018Q3

REPORT INFORMATION
  Report Type: Spontaneous
  Country: ZA (occurrence: ZA)
  Receive Date: 20180924
  Receipt Date: 20180924
  Transmission Date: 20181010
  Serious: Yes (Death, Hospitalization, Other)
  Sender: FDA-Public Use
  Company Number: ZA-009507513-1809ZAF007955

PATIENT
  Sex: Female

DRUGS (1)
  1. ESMERON [Suspect]
     Active Substance: ROCURONIUM BROMIDE
     Indication: ANAESTHESIA

REACTIONS (4)
  - Tidal volume decreased [Unknown]
  - Death [Fatal]
  - Skin reaction [Unknown]
  - Oxygen saturation decreased [Unknown]
